FAERS Safety Report 22053105 (Version 2)
Quarter: 2023Q1

REPORT INFORMATION
  Report Type: Spontaneous
  Country: US (occurrence: US)
  Receive Date: 20230302
  Receipt Date: 20230316
  Transmission Date: 20230417
  Serious: Yes (Other)
  Sender: FDA-Public Use
  Company Number: US-ORGANON-O2302USA002809

PATIENT
  Sex: Female

DRUGS (1)
  1. NEXPLANON [Suspect]
     Active Substance: ETONOGESTREL
     Indication: Contraception
     Dosage: 1 IMPLANT
     Route: 059
     Dates: start: 201808, end: 202009

REACTIONS (3)
  - Urinary retention [Not Recovered/Not Resolved]
  - Infection parasitic [Not Recovered/Not Resolved]
  - Constipation [Not Recovered/Not Resolved]
